FAERS Safety Report 19687847 (Version 9)
Quarter: 2024Q3

REPORT INFORMATION
  Report Type: Spontaneous
  Country: US (occurrence: US)
  Receive Date: 20210811
  Receipt Date: 20240722
  Transmission Date: 20241017
  Serious: Yes (Hospitalization, Other)
  Sender: PFIZER
  Company Number: US-PFIZER INC-2021556576

PATIENT
  Age: 54 Year
  Sex: Female

DRUGS (2)
  1. IBRANCE [Suspect]
     Active Substance: PALBOCICLIB
     Dosage: 100 MG
     Dates: start: 20210303
  2. IBRANCE [Suspect]
     Active Substance: PALBOCICLIB
     Dosage: 125 MG
     Dates: start: 20210421

REACTIONS (16)
  - Pancreatitis [Unknown]
  - Gastric infection [Unknown]
  - Neoplasm progression [Unknown]
  - Product dose omission in error [Unknown]
  - COVID-19 [Unknown]
  - Abdominal pain upper [Unknown]
  - Tooth disorder [Unknown]
  - Oral pain [Unknown]
  - Condition aggravated [Unknown]
  - Blister [Unknown]
  - Dermatitis contact [Unknown]
  - Urinary tract infection [Unknown]
  - Diarrhoea [Unknown]
  - Fatigue [Unknown]
  - Bone pain [Unknown]
  - Nausea [Unknown]

NARRATIVE: CASE EVENT DATE: 20210101
